FAERS Safety Report 24838886 (Version 1)
Quarter: 2025Q1

REPORT INFORMATION
  Report Type: Spontaneous
  Country: US (occurrence: US)
  Receive Date: 20250114
  Receipt Date: 20250114
  Transmission Date: 20250408
  Serious: No
  Sender: SANOFI AVENTIS
  Company Number: US-SANOFI-02367173

PATIENT
  Age: 65 Year
  Sex: Female

DRUGS (1)
  1. TOUJEO MAX [Suspect]
     Active Substance: INSULIN GLARGINE
     Indication: Type 2 diabetes mellitus
     Dosage: 20 U, QD (AT NIGHT) (SHE TAKES 2 UNITS IN THE MORNING IF HER BLOOD SUGAR LEVELS ARE HIGH)

REACTIONS (1)
  - Off label use [Unknown]
